FAERS Safety Report 5135093-X (Version None)
Quarter: 2006Q4

REPORT INFORMATION
  Report Type: 
  Country: None (occurrence: None)
  Receive Date: 20060831
  Receipt Date: 20060607
  Transmission Date: 20070319
  Serious: No
  Sender: FDA-Public Use
  Company Number: 2006-BP-05926BP

PATIENT
  Age: 89 Year
  Sex: Female

DRUGS (7)
  1. SPIRIVA [Suspect]
     Indication: DYSPNOEA
     Dosage: 18 MCG (18 MCG,1 IN 1 D),IH
     Dates: start: 20060508
  2. SPIRIVA [Suspect]
     Indication: EMPHYSEMA
     Dosage: 18 MCG (18 MCG,1 IN 1 D),IH
     Dates: start: 20060508
  3. NORVASC [Concomitant]
  4. ATENOLOL [Concomitant]
  5. ASPIRIN [Concomitant]
  6. TRIAMTERENE (TRIAMTERENE) [Concomitant]
  7. ATROVENT [Concomitant]

REACTIONS (1)
  - DIARRHOEA [None]
